FAERS Safety Report 10689663 (Version 1)
Quarter: 2015Q1

REPORT INFORMATION
  Report Type: Spontaneous
  Country: US (occurrence: None)
  Receive Date: 20150102
  Receipt Date: 20150102
  Transmission Date: 20150720
  Serious: Yes (Hospitalization)
  Sender: FDA-Public Use
  Company Number: None

PATIENT
  Age: 73 Year
  Sex: Male
  Weight: 162.6 kg

DRUGS (1)
  1. KETOROLAC TROMETHAMINE. [Suspect]
     Active Substance: KETOROLAC TROMETHAMINE
     Indication: ACUTE KIDNEY INJURY
     Route: 030
     Dates: start: 20140930, end: 20140930

REACTIONS (2)
  - Weight increased [None]
  - Acute kidney injury [None]

NARRATIVE: CASE EVENT DATE: 20141001
